FAERS Safety Report 21177141 (Version 5)
Quarter: 2023Q1

REPORT INFORMATION
  Report Type: Other
  Country: CN (occurrence: None)
  Receive Date: 20220805
  Receipt Date: 20230130
  Transmission Date: 20230418
  Serious: Yes (Hospitalization)
  Sender: FDA-Public Use
  Company Number: CN-ROCHE-3153391

PATIENT
  Age: 53 Year
  Sex: Female
  Weight: 50 kg

DRUGS (46)
  1. CAPECITABINE [Suspect]
     Active Substance: CAPECITABINE
     Indication: Breast cancer metastatic
     Dosage: 3000 MG/DAY,29/APR/2021 TO 05/MAY/2021, 07/MAY/2021 TO 12/MAY/2021, 23/MAY/2021 TO 05/JUN/2021, 10/J
     Route: 048
     Dates: start: 20210429, end: 20210505
  2. CAPECITABINE [Suspect]
     Active Substance: CAPECITABINE
     Dosage: 2500 MG/DAY,?27/JUL/2021  TO 07/AUG/2021, 17/AUG/2021 TO 28/AUG/2021, 08/SEP/2021  TO 20/SEP/2021, 2
     Route: 048
     Dates: start: 20210614, end: 20210623
  3. CAPECITABINE [Suspect]
     Active Substance: CAPECITABINE
     Dosage: 2000 MG/DAY, 19/OCT/2021 TO 22/OCT/2021 TO 01/NOV/2021, 09/NOV/2021 TO 13/NOV/2021, 15/NOV/2021 TO?2
     Route: 048
     Dates: start: 20211019, end: 20211020
  4. CAPECITABINE [Suspect]
     Active Substance: CAPECITABINE
     Dosage: 03/JAN/2022, 11/JAN/2022 TO 24/JAN/2022, 02/FEB/2022 TO 15/FEB/2022, 24/FEB/2022 TO 09/MAR/2022 17/M
     Route: 048
     Dates: start: 20211130, end: 20211213
  5. CAPECITABINE [Suspect]
     Active Substance: CAPECITABINE
     Dosage: 1000 MG/DAY, 08/AUG/2021 TO 09/AUG/2021 (NO EVENING DOSE), 21/OCT/2021 TO 21/OCT/2021 (MISSED DOSE),
     Route: 048
     Dates: start: 20210808, end: 20210809
  6. CAPECITABINE [Suspect]
     Active Substance: CAPECITABINE
     Dosage: 27/SEP/2021 TO 27/SEP/2021, 14/JUL/2022 TO 14/JUL/2022
     Route: 048
     Dates: start: 20220714, end: 20220714
  7. CAPECITABINE [Suspect]
     Active Substance: CAPECITABINE
     Dosage: 17/AUG/2021 TO 28/AUG/2021, 29/APR/2021 TO 23/JUN/2021?08/SEP/2021 TO 20/SEP/2021, 28/SEP/2021 TO 11
     Route: 048
     Dates: start: 20210727, end: 20210807
  8. CAPECITABINE [Suspect]
     Active Substance: CAPECITABINE
     Dosage: 21/DEC/2021 TO 03/JAN/2022, 11/JAN/2022 TO 24/JAN/2022, 02/FEB/2022 TO 15/FEB/2022, 24/FEB/2022 TO 0
     Route: 048
     Dates: start: 20211130, end: 20211213
  9. CAPECITABINE [Suspect]
     Active Substance: CAPECITABINE
     Dosage: REGIMEN 2
     Route: 048
     Dates: start: 20210506, end: 20210506
  10. CAPECITABINE [Suspect]
     Active Substance: CAPECITABINE
     Dosage: REGIMEN 3
     Route: 048
     Dates: start: 20210507, end: 20210512
  11. CAPECITABINE [Suspect]
     Active Substance: CAPECITABINE
     Dosage: REGIMEN 4
     Route: 048
     Dates: start: 20210523, end: 20210605
  12. CAPECITABINE [Suspect]
     Active Substance: CAPECITABINE
     Dosage: REGIMEN 5
     Route: 048
     Dates: start: 20210610, end: 20210610
  13. CAPECITABINE [Suspect]
     Active Substance: CAPECITABINE
     Dosage: REGIMEN 6
     Route: 048
     Dates: start: 20210614, end: 20210620
  14. CAPECITABINE [Suspect]
     Active Substance: CAPECITABINE
     Dosage: REGIMEN 7
     Route: 048
     Dates: start: 20210621, end: 20210623
  15. CAPECITABINE [Suspect]
     Active Substance: CAPECITABINE
     Dosage: REGIMEN 8
     Route: 048
     Dates: start: 20210716, end: 20210726
  16. CAPECITABINE [Suspect]
     Active Substance: CAPECITABINE
     Dosage: REGIMEN11
     Route: 048
     Dates: start: 20210816, end: 20210816
  17. CAPECITABINE [Suspect]
     Active Substance: CAPECITABINE
     Dosage: REGIMEN14
     Route: 048
     Dates: start: 20210908, end: 20210920
  18. CAPECITABINE [Suspect]
     Active Substance: CAPECITABINE
     Dosage: REGIMEN11
     Route: 048
     Dates: start: 20210817, end: 20210828
  19. CAPECITABINE [Suspect]
     Active Substance: CAPECITABINE
     Dosage: REGIMEN 13
     Route: 048
     Dates: start: 20210907, end: 20210907
  20. CAPECITABINE [Suspect]
     Active Substance: CAPECITABINE
     Dosage: REGIMEN 15
     Route: 048
     Dates: start: 20210928, end: 20211011
  21. CAPECITABINE [Suspect]
     Active Substance: CAPECITABINE
     Dosage: REGIMEN 17
     Route: 048
     Dates: start: 20211021, end: 20211021
  22. CAPECITABINE [Suspect]
     Active Substance: CAPECITABINE
     Dosage: REGIMEN 18
     Route: 048
     Dates: start: 20211022, end: 20211101
  23. CAPECITABINE [Suspect]
     Active Substance: CAPECITABINE
     Dosage: REGIMEN 19
     Route: 048
     Dates: start: 20211109, end: 20211113
  24. CAPECITABINE [Suspect]
     Active Substance: CAPECITABINE
     Dosage: REGIMEN 20 (MISSED DOSE)
     Route: 048
     Dates: start: 20211114, end: 20211114
  25. CAPECITABINE [Suspect]
     Active Substance: CAPECITABINE
     Dosage: REGIMEN 21
     Route: 048
     Dates: start: 20211115, end: 20211122
  26. CAPECITABINE [Suspect]
     Active Substance: CAPECITABINE
     Dosage: REGIMEN 23
     Route: 048
     Dates: start: 20211221, end: 20220103
  27. CAPECITABINE [Suspect]
     Active Substance: CAPECITABINE
     Dosage: REGIMEN 24
     Route: 048
     Dates: start: 20220111, end: 20220124
  28. CAPECITABINE [Suspect]
     Active Substance: CAPECITABINE
     Dosage: REGIMEN 25
     Route: 048
     Dates: start: 20220125, end: 20220125
  29. CAPECITABINE [Suspect]
     Active Substance: CAPECITABINE
     Dosage: REGIMEN 26
     Route: 048
     Dates: start: 20220202, end: 20220215
  30. CAPECITABINE [Suspect]
     Active Substance: CAPECITABINE
     Dosage: REGIMEN 27
     Route: 048
     Dates: start: 20220216, end: 20220216
  31. CAPECITABINE [Suspect]
     Active Substance: CAPECITABINE
     Dosage: REGIMEN 28
     Route: 048
     Dates: start: 20220224, end: 20220309
  32. CAPECITABINE [Suspect]
     Active Substance: CAPECITABINE
     Dosage: REGIMEN 29
     Route: 048
     Dates: start: 20220317, end: 20220330
  33. CAPECITABINE [Suspect]
     Active Substance: CAPECITABINE
     Dosage: REGIMEN 30
     Route: 048
     Dates: start: 20220407, end: 20220420
  34. CAPECITABINE [Suspect]
     Active Substance: CAPECITABINE
     Dosage: REGIMEN 31
     Route: 048
     Dates: start: 20220428, end: 20220511
  35. CAPECITABINE [Suspect]
     Active Substance: CAPECITABINE
     Dosage: REGIMEN 32
     Route: 048
     Dates: start: 20220519, end: 20220601
  36. CAPECITABINE [Suspect]
     Active Substance: CAPECITABINE
     Dosage: REGIMEN 33
     Route: 048
     Dates: start: 20220609, end: 20220622
  37. CAPECITABINE [Suspect]
     Active Substance: CAPECITABINE
     Dosage: REGIMEN 34
     Route: 048
     Dates: start: 20220630, end: 20220713
  38. CAPECITABINE [Suspect]
     Active Substance: CAPECITABINE
     Dosage: REGIMEN 35
     Route: 048
     Dates: start: 20220714, end: 20220714
  39. LAPATINIB [Suspect]
     Active Substance: LAPATINIB
     Indication: Breast cancer metastatic
     Dosage: 1250 MG/DAY, ONCE DAILY
     Route: 048
     Dates: start: 20210429, end: 20210623
  40. LAPATINIB [Suspect]
     Active Substance: LAPATINIB
     Route: 048
     Dates: start: 20210927, end: 20210927
  41. LAPATINIB [Suspect]
     Active Substance: LAPATINIB
     Dosage: 1000 MG/DAY, ONCE DAILY
     Route: 048
     Dates: start: 20210928, end: 20220715
  42. LAPATINIB [Suspect]
     Active Substance: LAPATINIB
     Route: 048
     Dates: start: 20210803, end: 20210926
  43. METAMIZOLE SODIUM [Concomitant]
     Active Substance: METAMIZOLE SODIUM
     Dosage: 1 TABLET, WITH SPECIFIC DOSE UNKNOWN, ONCE, PO
  44. ACETAMINOPHEN [Concomitant]
     Active Substance: ACETAMINOPHEN
     Dosage: 1 TABLET, WITH SPECIFIC DOSE UNKNOWN, ONCE, PO
  45. AMOXICILLIN [Concomitant]
     Active Substance: AMOXICILLIN
     Dates: start: 20200718
  46. CEFTAZIDIME [Concomitant]
     Active Substance: CEFTAZIDIME
     Route: 041

REACTIONS (1)
  - Ulcer [Recovered/Resolved]

NARRATIVE: CASE EVENT DATE: 20220718
